FAERS Safety Report 25123854 (Version 1)
Quarter: 2025Q1

REPORT INFORMATION
  Report Type: Spontaneous
  Country: SG (occurrence: SG)
  Receive Date: 20250326
  Receipt Date: 20250326
  Transmission Date: 20250408
  Serious: Yes (Death, Other)
  Sender: AMGEN
  Company Number: SG-AMGEN-SGPSP2025055910

PATIENT
  Age: 63 Year
  Sex: Female

DRUGS (6)
  1. BEVACIZUMAB [Suspect]
     Active Substance: BEVACIZUMAB
     Indication: Adenocarcinoma of the cervix
     Route: 065
  2. BEVACIZUMAB [Suspect]
     Active Substance: BEVACIZUMAB
     Indication: Peritoneal neoplasm
  3. PACLITAXEL [Concomitant]
     Active Substance: PACLITAXEL
     Indication: Adenocarcinoma of the cervix
     Route: 065
  4. PACLITAXEL [Concomitant]
     Active Substance: PACLITAXEL
     Indication: Peritoneal neoplasm
  5. CARBOPLATIN [Concomitant]
     Active Substance: CARBOPLATIN
     Indication: Adenocarcinoma of the cervix
     Route: 065
  6. CARBOPLATIN [Concomitant]
     Active Substance: CARBOPLATIN
     Indication: Peritoneal neoplasm

REACTIONS (4)
  - Death [Fatal]
  - Small intestinal obstruction [Recovered/Resolved]
  - Adenocarcinoma of the cervix [Unknown]
  - Blood creatinine increased [Recovered/Resolved]
